FAERS Safety Report 6088058-8 (Version None)
Quarter: 2009Q1

REPORT INFORMATION
  Report Type: 
  Country: None (occurrence: None)
  Receive Date: 20090218
  Receipt Date: 20090204
  Transmission Date: 20090719
  Serious: Yes (Hospitalization, Disabling)
  Sender: FDA-Public Use
  Company Number: 2009S1002007

PATIENT
  Age: 26 Year
  Sex: Female

DRUGS (4)
  1. LAMOTRIGINE [Suspect]
     Indication: EPILEPSY
     Dosage: 500 MG; DAILY; ORAL
     Route: 048
     Dates: start: 19980101, end: 20081201
  2. CITALOPRAM [Concomitant]
  3. LOESTRIN 1.5/30 [Concomitant]
  4. MEBEVERINE [Concomitant]

REACTIONS (3)
  - CONDITION AGGRAVATED [None]
  - HALLUCINATION, VISUAL [None]
  - PSYCHOTIC DISORDER [None]
